FAERS Safety Report 5202003-6 (Version None)
Quarter: 2007Q1

REPORT INFORMATION
  Report Type: 
  Country: None (occurrence: None)
  Receive Date: 20070109
  Receipt Date: 20070103
  Transmission Date: 20070707
  Serious: Yes (Other)
  Sender: FDA-Public Use
  Company Number: US-SOLVAY-00206004033

PATIENT
  Age: 62 Year
  Sex: Male

DRUGS (1)
  1. ANDROGEL [Suspect]
     Indication: ILL-DEFINED DISORDER
     Dosage: DAILY DOSE: 5 GRAM(S)
     Route: 062
     Dates: start: 20021202

REACTIONS (3)
  - BLOOD TESTOSTERONE DECREASED [None]
  - TENDON RUPTURE [None]
  - WEIGHT DECREASED [None]
